FAERS Safety Report 4675719-8 (Version None)
Quarter: 2005Q2

REPORT INFORMATION
  Report Type: 
  Country: None (occurrence: None)
  Receive Date: 20050527
  Receipt Date: 20050217
  Transmission Date: 20051028
  Serious: No
  Sender: FDA-Public Use
  Company Number: US-BRISTOL-MYERS SQUIBB COMPANY-12868709

PATIENT
  Age: 78 Year
  Sex: Male

DRUGS (2)
  1. ERBITUX [Suspect]
     Indication: NEOPLASM MALIGNANT
  2. GLEEVEC [Concomitant]

REACTIONS (1)
  - NORMOCHROMIC NORMOCYTIC ANAEMIA [None]
